FAERS Safety Report 4393054-2 (Version None)
Quarter: 2004Q3

REPORT INFORMATION
  Report Type: 
  Country: None (occurrence: None)
  Receive Date: 20040708
  Receipt Date: 20040630
  Transmission Date: 20050211
  Serious: Yes (Life-Threatening)
  Sender: FDA-Public Use
  Company Number: FR-ROCHE-372468

PATIENT
  Age: 68 Year
  Sex: Female

DRUGS (4)
  1. NICARDIPINE HCL [Suspect]
     Indication: ESSENTIAL HYPERTENSION
     Route: 048
     Dates: end: 20010330
  2. ROFERON-A [Suspect]
     Indication: ADENOCARCINOMA
     Route: 058
     Dates: start: 20010212, end: 20010326
  3. PROLEUKIN [Suspect]
     Indication: ADENOCARCINOMA
     Route: 042
     Dates: start: 20010212, end: 20010328
  4. HYPERIUM [Concomitant]
     Indication: DRUG USE FOR UNKNOWN INDICATION
     Route: 048
     Dates: end: 20010330

REACTIONS (4)
  - CEREBRAL ISCHAEMIA [None]
  - ENCEPHALITIS TOXIC [None]
  - QUADRIPARESIS [None]
  - VASCULITIS CEREBRAL [None]
